FAERS Safety Report 7946580-0 (Version None)
Quarter: 2011Q4

REPORT INFORMATION
  Report Type: 
  Country: None (occurrence: None)
  Receive Date: 20111129
  Receipt Date: 20111124
  Transmission Date: 20120403
  Serious: Yes (Hospitalization)
  Sender: FDA-Public Use
  Company Number: KR-EISAI INC-E2090-01869-CLI-KR

PATIENT
  Sex: Male
  Weight: 74 kg

DRUGS (1)
  1. ZONISAMIDE [Suspect]
     Indication: EPILEPSY
     Route: 048
     Dates: start: 20110713, end: 20110101

REACTIONS (1)
  - STEVENS-JOHNSON SYNDROME [None]
